FAERS Safety Report 8513613-2 (Version None)
Quarter: 2012Q3

REPORT INFORMATION
  Report Type: 
  Country: None (occurrence: None)
  Receive Date: 20120717
  Receipt Date: 20120711
  Transmission Date: 20120928
  Serious: No
  Sender: FDA-Public Use
  Company Number: US-PFIZER INC-2012168096

PATIENT
  Sex: Female
  Weight: 95 kg

DRUGS (6)
  1. CELEBREX [Suspect]
     Indication: MUSCLE SPASMS
     Dosage: 200 MG, 2X/DAY
     Route: 048
     Dates: start: 20120601
  2. CELEBREX [Suspect]
     Indication: FIBROMYALGIA
     Dosage: 400 MG, 2X/DAY
     Route: 048
     Dates: start: 20120601, end: 20120701
  3. FLEXERIL [Suspect]
     Indication: MUSCLE SPASMS
     Dosage: 20 MG, 2X/DAY (TWO TABLETS OF 10MG)
     Route: 048
     Dates: start: 20120601, end: 20120701
  4. CYMBALTA [Concomitant]
     Indication: FIBROMYALGIA
     Dosage: 90 MG, DAILY
  5. FLEXERIL [Suspect]
     Indication: FIBROMYALGIA
  6. VALACICLOVIR [Concomitant]
     Indication: RASH
     Dosage: 250 MG, 2X/DAY

REACTIONS (4)
  - MUSCLE SPASMS [None]
  - OEDEMA PERIPHERAL [None]
  - DYSPNOEA [None]
  - SWELLING FACE [None]
